FAERS Safety Report 4880238-X (Version None)
Quarter: 2006Q1

REPORT INFORMATION
  Report Type: 
  Country: None (occurrence: None)
  Receive Date: 20060111
  Receipt Date: 20051229
  Transmission Date: 20060701
  Serious: Yes (Hospitalization, Other)
  Sender: FDA-Public Use
  Company Number: 2005153540

PATIENT
  Age: 31 Year
  Sex: Female
  Weight: 102.5129 kg

DRUGS (5)
  1. LYRICA [Suspect]
     Indication: HEADACHE
     Dosage: 75 MG (75 MG, 1 IN 1 D)
     Dates: start: 20051102, end: 20051106
  2. SEROQUEL [Concomitant]
  3. EFFEXOR [Concomitant]
  4. LISINOPRIL [Concomitant]
  5. ACETAMINOPHEN [Concomitant]

REACTIONS (8)
  - AGGRESSION [None]
  - AGITATION [None]
  - AMNESIA [None]
  - BELLIGERENCE [None]
  - CONFUSIONAL STATE [None]
  - DEPRESSION [None]
  - INCOHERENT [None]
  - TREMOR [None]
